FAERS Safety Report 13857345 (Version 4)
Quarter: 2018Q1

REPORT INFORMATION
  Report Type: Spontaneous
  Country: US (occurrence: US)
  Receive Date: 20170810
  Receipt Date: 20180329
  Transmission Date: 20180508
  Serious: Yes (Hospitalization)
  Sender: FDA-Public Use
  Company Number: US-VIFOR (INTERNATIONAL) INC.-VIT-2016-07677

PATIENT
  Age: 91 Year
  Sex: Male
  Weight: 68.1 kg

DRUGS (25)
  1. LOTEMAX [Concomitant]
     Active Substance: LOTEPREDNOL ETABONATE
     Dosage: LEFT EYE IN AM
  2. ISOSORBIDE MONONITRATE. [Concomitant]
     Active Substance: ISOSORBIDE MONONITRATE
  3. ECOTRIN [Concomitant]
     Active Substance: ASPIRIN
     Route: 048
  4. NORVASC [Concomitant]
     Active Substance: AMLODIPINE BESYLATE
     Route: 048
  5. CATAPRES [Concomitant]
     Active Substance: CLONIDINE HYDROCHLORIDE
     Route: 048
  6. IMDUR [Concomitant]
     Active Substance: ISOSORBIDE MONONITRATE
     Route: 048
  7. TRIAMCINOLONE [Concomitant]
     Active Substance: TRIAMCINOLONE
  8. DETROL- LA [Concomitant]
     Route: 048
  9. CENTRUM SILVER [Concomitant]
     Active Substance: MINERALS\VITAMINS
     Route: 048
  10. VELTASSA [Suspect]
     Active Substance: PATIROMER
     Indication: HYPERKALAEMIA
     Route: 048
     Dates: start: 201605
  11. LOSARTAN. [Concomitant]
     Active Substance: LOSARTAN
  12. LASIX [Concomitant]
     Active Substance: FUROSEMIDE
     Route: 048
  13. XANAX [Concomitant]
     Active Substance: ALPRAZOLAM
     Indication: ANXIETY
     Route: 048
  14. ACETYLSALICYLIC ACID [Concomitant]
     Active Substance: ASPIRIN
  15. COZAAR [Concomitant]
     Active Substance: LOSARTAN POTASSIUM
     Route: 048
  16. POTASSIUM CHLORIDE. [Concomitant]
     Active Substance: POTASSIUM CHLORIDE
  17. AMLODIPINE [Concomitant]
     Active Substance: AMLODIPINE BESYLATE
  18. CLONIDINE. [Concomitant]
     Active Substance: CLONIDINE
  19. LASIX [Concomitant]
     Active Substance: FUROSEMIDE
     Route: 048
  20. ONDANSETRON [Concomitant]
     Active Substance: ONDANSETRON
  21. FUROSEMIDE. [Concomitant]
     Active Substance: FUROSEMIDE
  22. VELTASSA [Suspect]
     Active Substance: PATIROMER
     Route: 048
     Dates: start: 20160527
  23. PARACETAMOL/HYDROCODONE BITARTRATE [Concomitant]
  24. ATORVASTATIN [Concomitant]
     Active Substance: ATORVASTATIN
  25. LIPITOR [Concomitant]
     Active Substance: ATORVASTATIN CALCIUM
     Route: 048

REACTIONS (10)
  - Off label use [Unknown]
  - Drug dose omission [Recovered/Resolved]
  - Hypertension [Recovered/Resolved]
  - Hypokalaemia [Recovered/Resolved]
  - Abdominal pain [Recovered/Resolved]
  - Treatment failure [Unknown]
  - Abdominal mass [Unknown]
  - Constipation [Recovered/Resolved]
  - Flank pain [Unknown]
  - Urinary tract infection [Recovered/Resolved]

NARRATIVE: CASE EVENT DATE: 2016
